FAERS Safety Report 16938741 (Version 1)
Quarter: 2019Q4

REPORT INFORMATION
  Report Type: Spontaneous
  Country: US (occurrence: US)
  Receive Date: 20190828
  Receipt Date: 20190828
  Transmission Date: 20200122
  Serious: Yes (Other)
  Sender: FDA-Public Use
  Company Number: None

PATIENT
  Age: 81 Year
  Sex: Female
  Weight: 55.34 kg

DRUGS (1)
  1. ESTRADIOL VAGINAL CREAM USP 0.01% UNSCENTED [Suspect]
     Active Substance: ESTRADIOL
     Indication: UTERINE HAEMORRHAGE
     Route: 067
     Dates: start: 20190626

REACTIONS (6)
  - Breast pain [None]
  - Asthenia [None]
  - Ovarian enlargement [None]
  - Dizziness [None]
  - Alopecia [None]
  - Tremor [None]

NARRATIVE: CASE EVENT DATE: 20190710
